FAERS Safety Report 22596520 (Version 1)
Quarter: 2023Q2

REPORT INFORMATION
  Report Type: Spontaneous
  Country: RU (occurrence: RU)
  Receive Date: 20230613
  Receipt Date: 20230613
  Transmission Date: 20230721
  Serious: Yes (Other)
  Sender: FDA-Public Use
  Company Number: RU-002147023-NVSC2023RU122638

PATIENT
  Age: 25 Year
  Sex: Male

DRUGS (7)
  1. TERBINAFINE [Suspect]
     Active Substance: TERBINAFINE
     Indication: Tinea cruris
     Dosage: 250 MG, QD
     Route: 065
  2. BETAMETHASONE [Concomitant]
     Active Substance: BETAMETHASONE
     Indication: Tinea cruris
     Dosage: UNK (TWICE A DAY FOR A WEEK)
     Route: 061
  3. BETAMETHASONE [Concomitant]
     Active Substance: BETAMETHASONE
     Dosage: UNK (PERIODICALLY USED THE COMBINATION CREAM)
     Route: 061
  4. CLOTRIMAZOLE [Concomitant]
     Active Substance: CLOTRIMAZOLE
     Indication: Tinea cruris
     Dosage: UNK (TWICE A DAY FOR A WEEK)
     Route: 061
  5. CLOTRIMAZOLE [Concomitant]
     Active Substance: CLOTRIMAZOLE
     Dosage: UNK (PERIODICALLY USED THE COMBINATION CREAM)
     Route: 061
  6. GENTAMICIN [Concomitant]
     Active Substance: GENTAMICIN
     Indication: Tinea cruris
     Dosage: UNK (TWICE A DAY FOR A WEEK)
     Route: 061
  7. GENTAMICIN [Concomitant]
     Active Substance: GENTAMICIN
     Dosage: UNK (PERIODICALLY USED THE COMBINATION CREAM)
     Route: 061

REACTIONS (1)
  - Intentional product misuse [Unknown]
